FAERS Safety Report 8975619 (Version 2)
Quarter: 2013Q1

REPORT INFORMATION
  Report Type: Spontaneous
  Country: US (occurrence: US)
  Receive Date: 20121219
  Receipt Date: 20130325
  Transmission Date: 20140127
  Serious: Yes (Other)
  Sender: FDA-Public Use
  Company Number: US-ABBOTT-11P-163-0726120-00

PATIENT
  Sex: 0

DRUGS (1)
  1. ADALIMUMAB [Suspect]
     Indication: MATERNAL EXPOSURE TIMING UNSPECIFIED
     Route: 064

REACTIONS (2)
  - Pulmonary oedema [Recovered/Resolved]
  - Foetal exposure during pregnancy [Unknown]
